FAERS Safety Report 5120888-9 (Version None)
Quarter: 2006Q4

REPORT INFORMATION
  Report Type: 
  Country: None (occurrence: None)
  Receive Date: 20061005
  Receipt Date: 20060706
  Transmission Date: 20070319
  Serious: Yes (Other)
  Sender: FDA-Public Use
  Company Number: PHNU2006DE02466

PATIENT
  Sex: Female

DRUGS (2)
  1. GLEEVEC [Suspect]
     Indication: CHRONIC MYELOID LEUKAEMIA
     Dosage: ALTERNATING BETWEEN 200 TO 300 MG/DAY
     Route: 048
     Dates: start: 20040901
  2. CHOLESTEROL- AND TRIGLYCERIDE REDUCERS [Concomitant]
     Route: 065

REACTIONS (4)
  - APHTHOUS STOMATITIS [None]
  - HEPATITIS [None]
  - HEPATITIS C [None]
  - TRANSAMINASES INCREASED [None]
